FAERS Safety Report 25330749 (Version 2)
Quarter: 2025Q2

REPORT INFORMATION
  Report Type: Spontaneous
  Country: GT (occurrence: GT)
  Receive Date: 20250519
  Receipt Date: 20250602
  Transmission Date: 20250717
  Serious: No
  Sender: PFIZER
  Company Number: GT-PFIZER INC-PV202500059164

PATIENT
  Sex: Female

DRUGS (1)
  1. GENOTROPIN [Suspect]
     Active Substance: SOMATROPIN

REACTIONS (2)
  - Device delivery system issue [Unknown]
  - Drug dose omission by device [Unknown]
